FAERS Safety Report 9309678 (Version 1)
Quarter: 2013Q2

REPORT INFORMATION
  Report Type: Spontaneous
  Country: US (occurrence: US)
  Receive Date: 20130525
  Receipt Date: 20130525
  Transmission Date: 20140414
  Serious: Yes (Other)
  Sender: FDA-Public Use
  Company Number: US-BRISTOL-MYERS SQUIBB COMPANY-18586461

PATIENT
  Age: 52 Year
  Sex: Male
  Weight: 122.9 kg

DRUGS (10)
  1. BYDUREON [Suspect]
     Indication: TYPE 2 DIABETES MELLITUS
     Route: 058
     Dates: start: 20120705, end: 20130102
  2. BYETTA [Suspect]
     Dates: start: 20101012, end: 20120705
  3. ECOTRIN [Concomitant]
     Indication: PROPHYLAXIS
  4. METFORMIN [Concomitant]
     Indication: DIABETES MELLITUS
  5. LISINOPRIL [Concomitant]
     Indication: HYPERTENSION
  6. NIASPAN [Concomitant]
     Indication: LIPIDS INCREASED
  7. LOVAZA [Concomitant]
     Indication: LIPIDS INCREASED
  8. CRESTOR [Concomitant]
     Indication: LIPIDS INCREASED
  9. ISOSORBIDE [Concomitant]
     Indication: CORONARY ARTERY DISEASE
  10. FENOFIBRATE [Concomitant]

REACTIONS (3)
  - Injection site abscess [Recovered/Resolved]
  - Injection site nodule [Recovered/Resolved]
  - Nausea [Unknown]
